FAERS Safety Report 8829180 (Version 1)
Quarter: 2012Q4

REPORT INFORMATION
  Report Type: 
  Country: AE (occurrence: AE)
  Receive Date: 20121009
  Receipt Date: 20121009
  Transmission Date: 20130627
  Serious: Yes (Hospitalization)
  Sender: FDA-Public Use
  Company Number: AE-PAR PHARMACEUTICAL, INC-2012SCPR004637

PATIENT

DRUGS (2)
  1. FLUOXETINE [Suspect]
     Indication: DEPRESSION
     Dosage: UNK UNK, Unknown
     Route: 065
  2. FLUOXETINE [Suspect]
     Dosage: 1.8 g, Unknown
     Route: 065

REACTIONS (8)
  - Central nervous system necrosis [Unknown]
  - Cerebral ischaemia [Unknown]
  - Nuclear magnetic resonance imaging brain abnormal [Recovering/Resolving]
  - Hypometabolism [Unknown]
  - Oxygen saturation decreased [Unknown]
  - Serotonin syndrome [Recovering/Resolving]
  - Overdose [Unknown]
  - Suicide attempt [Unknown]
